FAERS Safety Report 19167995 (Version 2)
Quarter: 2021Q2

REPORT INFORMATION
  Report Type: Spontaneous
  Country: US (occurrence: US)
  Receive Date: 20210422
  Receipt Date: 20210519
  Transmission Date: 20210717
  Serious: No
  Sender: FDA-Public Use
  Company Number: US-009507513-2104USA003763

PATIENT
  Age: 86 Year
  Sex: Female

DRUGS (3)
  1. VITAMINE B12 [Concomitant]
     Active Substance: CYANOCOBALAMIN
  2. ALBUTEROL SULFATE. [Suspect]
     Active Substance: ALBUTEROL SULFATE
     Indication: CHRONIC OBSTRUCTIVE PULMONARY DISEASE
     Dosage: 2 PUFFS, EVERY 3?6 HOURS
     Dates: start: 202012
  3. OXYGEN. [Concomitant]
     Active Substance: OXYGEN

REACTIONS (10)
  - Device malfunction [Unknown]
  - Carpal tunnel syndrome [Recovering/Resolving]
  - Paranoia [Recovering/Resolving]
  - Device difficult to use [Unknown]
  - Device connection issue [Unknown]
  - Product leakage [Unknown]
  - Pain in extremity [Recovering/Resolving]
  - Illness [Recovering/Resolving]
  - Product use in unapproved indication [Unknown]
  - Negative thoughts [Recovering/Resolving]

NARRATIVE: CASE EVENT DATE: 202012
